FAERS Safety Report 10525821 (Version 1)
Quarter: 2014Q4

REPORT INFORMATION
  Report Type: Report from Study
  Country: BR (occurrence: BR)
  Receive Date: 20141017
  Receipt Date: 20141017
  Transmission Date: 20150528
  Serious: Yes (Death, Disabling, Other)
  Sender: FDA-Public Use
  Company Number: PHHY2014BR134865

PATIENT
  Sex: Male

DRUGS (3)
  1. TRILEPTAL [Suspect]
     Active Substance: OXCARBAZEPINE
     Indication: SEIZURE
     Dosage: UNK, TID
     Route: 065
  2. OMEPRAZOLE. [Concomitant]
     Active Substance: OMEPRAZOLE
     Indication: NAUSEA
     Route: 065
  3. FORASEQ [Suspect]
     Active Substance: BUDESONIDE\FORMOTEROL FUMARATE
     Indication: PRODUCT USED FOR UNKNOWN INDICATION
     Route: 065

REACTIONS (10)
  - Trisomy 21 [Fatal]
  - Respiratory disorder [Unknown]
  - Aspiration bronchial [Unknown]
  - Multi-organ failure [Fatal]
  - Abasia [Unknown]
  - Feeding disorder [Unknown]
  - Infection [Unknown]
  - Dysphagia [Unknown]
  - Seizure [Unknown]
  - Urinary tract disorder [Unknown]
